FAERS Safety Report 4847971-7 (Version None)
Quarter: 2005Q4

REPORT INFORMATION
  Report Type: 
  Country: None (occurrence: None)
  Receive Date: 20051206
  Receipt Date: 20051115
  Transmission Date: 20060501
  Serious: Yes (Other)
  Sender: FDA-Public Use
  Company Number: US_0503114656

PATIENT
  Age: 81 Year
  Sex: Female
  Weight: 61.8 kg

DRUGS (7)
  1. FORTEO [Suspect]
     Indication: OSTEOPOROSIS
     Dosage: 20 UG, DAILY (1/D),
     Dates: start: 20050217, end: 20050615
  2. FORTEO PEN, 250MCG/ML (3ML) (FORTEO PEN 250MCG/ML (3ML)) PEN, DISPOSAB [Concomitant]
  3. SINGULAIR [Concomitant]
  4. NEXIUM [Concomitant]
  5. MACROBID (ESOMEPRAZOLE MAGNESIUM) [Concomitant]
  6. ADVAIR DISKUS 100/50 [Concomitant]
  7. CALCIUM WITH VITAMIN D (CALCIUM PHOSPHATE, CALCIUM SODIUM LACTATE, ERG [Concomitant]

REACTIONS (22)
  - ABASIA [None]
  - ALOPECIA [None]
  - BACK PAIN [None]
  - BONE PAIN [None]
  - BRONCHITIS [None]
  - DIFFUSE LARGE B-CELL LYMPHOMA STAGE III [None]
  - DIZZINESS [None]
  - DRUG ADMINISTRATION ERROR [None]
  - DYSSTASIA [None]
  - FATIGUE [None]
  - FEELING ABNORMAL [None]
  - HEADACHE [None]
  - HYPERSENSITIVITY [None]
  - INJECTION SITE HAEMORRHAGE [None]
  - INJECTION SITE SWELLING [None]
  - MUSCLE SPASMS [None]
  - MYALGIA [None]
  - PAIN [None]
  - PAIN IN EXTREMITY [None]
  - PHARMACEUTICAL PRODUCT COMPLAINT [None]
  - SCAR [None]
  - SHOULDER PAIN [None]
